FAERS Safety Report 9183314 (Version 1)
Quarter: 2012Q4

REPORT INFORMATION
  Report Type: 
  Country: US (occurrence: US)
  Receive Date: 20121030
  Receipt Date: 20121030
  Transmission Date: 20130627
  Serious: Yes (Other)
  Sender: FDA-Public Use
  Company Number: PHEH2012US020882

PATIENT
  Age: 55 None
  Sex: Male

DRUGS (1)
  1. AFINITOR [Suspect]
     Indication: RENAL NEOPLASM
     Dosage: 10 mg, daily
     Route: 048
     Dates: start: 20120920

REACTIONS (1)
  - International normalised ratio increased [Unknown]
